FAERS Safety Report 6676585-1 (Version None)
Quarter: 2010Q2

REPORT INFORMATION
  Report Type: 
  Country: None (occurrence: None)
  Receive Date: 20100412
  Receipt Date: 20100405
  Transmission Date: 20101027
  Serious: Yes (Life-Threatening, Hospitalization)
  Sender: FDA-Public Use
  Company Number: JP-BAYER-200910559BYL

PATIENT
  Age: 66 Year
  Sex: Male
  Weight: 68 kg

DRUGS (4)
  1. NEXAVAR [Suspect]
     Indication: RENAL CELL CARCINOMA STAGE IV
     Dosage: TOTAL DAILY DOSE: 800 MG  UNIT DOSE: 200 MG
     Route: 048
     Dates: start: 20090202, end: 20090212
  2. LOXONIN [Concomitant]
     Indication: ANALGESIC THERAPY
     Route: 048
     Dates: start: 20090309, end: 20090323
  3. ISALON [Concomitant]
     Route: 048
     Dates: start: 20090309, end: 20090323
  4. OXINORM [Concomitant]
     Indication: ANALGESIC THERAPY
     Route: 048
     Dates: start: 20090309, end: 20090323

REACTIONS (3)
  - AORTIC DISSECTION [None]
  - C-REACTIVE PROTEIN INCREASED [None]
  - PROTEIN URINE [None]
